FAERS Safety Report 5673592-2 (Version None)
Quarter: 2008Q1

REPORT INFORMATION
  Report Type: 
  Country: None (occurrence: None)
  Receive Date: 20080319
  Receipt Date: 20080317
  Transmission Date: 20080703
  Serious: Yes (Hospitalization)
  Sender: FDA-Public Use
  Company Number: JP-BOEHRINGER INGELHEIM GMBH, GERMANY-2008-BP-03999NB

PATIENT
  Sex: Female

DRUGS (7)
  1. MICARDIS [Suspect]
     Indication: HYPERTENSION
     Route: 048
     Dates: start: 20060906
  2. LASIX [Concomitant]
     Route: 048
  3. ASPIRIN [Concomitant]
     Route: 048
     Dates: end: 20080201
  4. ISOSORBIDE DINITRATE [Concomitant]
     Route: 062
     Dates: end: 20080201
  5. HOKUNALIN:TAPE (TULOBUTEROL) [Concomitant]
     Route: 062
     Dates: end: 20080201
  6. MEVALOTIN [Concomitant]
     Route: 048
     Dates: end: 20080201
  7. BASEN [Concomitant]
     Route: 048
     Dates: end: 20080201

REACTIONS (1)
  - CARDIAC FAILURE [None]
